FAERS Safety Report 24737520 (Version 1)
Quarter: 2024Q4

REPORT INFORMATION
  Report Type: Spontaneous
  Country: US (occurrence: US)
  Receive Date: 20241216
  Receipt Date: 20241216
  Transmission Date: 20250115
  Serious: Yes (Hospitalization)
  Sender: KINDEVA DRUG DELIVERY L.P.
  Company Number: US-Kindeva Drug Delivery L.P.-2167149

PATIENT
  Sex: Male

DRUGS (4)
  1. SEIZALAM [Suspect]
     Active Substance: MIDAZOLAM HYDROCHLORIDE
  2. FENTANYL [Concomitant]
     Active Substance: FENTANYL
  3. ROCURONIUM [Concomitant]
     Active Substance: ROCURONIUM BROMIDE
  4. KETAMINE HYDROCHLORIDE [Concomitant]
     Active Substance: KETAMINE HYDROCHLORIDE

REACTIONS (2)
  - Apnoea [Unknown]
  - Dyskinesia [Unknown]
